FAERS Safety Report 8847892 (Version 2)
Quarter: 2013Q1

REPORT INFORMATION
  Report Type: Spontaneous
  Country: PK (occurrence: PK)
  Receive Date: 20121018
  Receipt Date: 20130212
  Transmission Date: 20140127
  Serious: Yes (Hospitalization)
  Sender: FDA-Public Use
  Company Number: PK-PFIZER INC-2012255871

PATIENT
  Sex: Male

DRUGS (1)
  1. LINCOCIN [Suspect]
     Indication: UPPER RESPIRATORY TRACT INFECTION
     Dosage: 600 MG, 1X/DAY
     Route: 030

REACTIONS (1)
  - Renal failure [Recovered/Resolved]
